FAERS Safety Report 18826852 (Version 5)
Quarter: 2022Q3

REPORT INFORMATION
  Report Type: Report from Study
  Country: DE (occurrence: DE)
  Receive Date: 20210202
  Receipt Date: 20220722
  Transmission Date: 20221026
  Serious: Yes (Hospitalization, Other)
  Sender: FDA-Public Use
  Company Number: DE-TAKEDA-2021TUS005477

PATIENT
  Age: 3 Year
  Sex: Male
  Weight: 11 kg

DRUGS (16)
  1. TEDUGLUTIDE [Suspect]
     Active Substance: TEDUGLUTIDE
     Indication: Gastroschisis
     Dosage: 0.05 MILLIGRAM/KILOGRAM, QD
     Route: 058
     Dates: start: 20210124, end: 20210124
  2. TEDUGLUTIDE [Suspect]
     Active Substance: TEDUGLUTIDE
     Indication: Gastroschisis
     Dosage: 0.05 MILLIGRAM/KILOGRAM, QD
     Route: 058
     Dates: start: 20210124, end: 20210124
  3. TEDUGLUTIDE [Suspect]
     Active Substance: TEDUGLUTIDE
     Indication: Gastroschisis
     Dosage: 0.05 MILLIGRAM/KILOGRAM, QD
     Route: 058
     Dates: start: 20210124, end: 20210124
  4. TEDUGLUTIDE [Suspect]
     Active Substance: TEDUGLUTIDE
     Indication: Gastroschisis
     Dosage: 0.05 MILLIGRAM/KILOGRAM, QD
     Route: 058
     Dates: start: 20210124, end: 20210124
  5. TEDUGLUTIDE [Suspect]
     Active Substance: TEDUGLUTIDE
     Indication: Short-bowel syndrome
     Dosage: 0.05 MILLIGRAM/KILOGRAM, QD
     Route: 058
     Dates: start: 20210201, end: 20210201
  6. TEDUGLUTIDE [Suspect]
     Active Substance: TEDUGLUTIDE
     Indication: Short-bowel syndrome
     Dosage: 0.05 MILLIGRAM/KILOGRAM, QD
     Route: 058
     Dates: start: 20210201, end: 20210201
  7. TEDUGLUTIDE [Suspect]
     Active Substance: TEDUGLUTIDE
     Indication: Short-bowel syndrome
     Dosage: 0.05 MILLIGRAM/KILOGRAM, QD
     Route: 058
     Dates: start: 20210201, end: 20210201
  8. TEDUGLUTIDE [Suspect]
     Active Substance: TEDUGLUTIDE
     Indication: Short-bowel syndrome
     Dosage: 0.05 MILLIGRAM/KILOGRAM, QD
     Route: 058
     Dates: start: 20210201, end: 20210201
  9. TEDUGLUTIDE [Suspect]
     Active Substance: TEDUGLUTIDE
     Dosage: 0.24 MILLILITER, QD
     Route: 058
  10. TEDUGLUTIDE [Suspect]
     Active Substance: TEDUGLUTIDE
     Dosage: 0.24 MILLILITER, QD
     Route: 058
  11. TEDUGLUTIDE [Suspect]
     Active Substance: TEDUGLUTIDE
     Dosage: 0.24 MILLILITER, QD
     Route: 058
  12. TEDUGLUTIDE [Suspect]
     Active Substance: TEDUGLUTIDE
     Dosage: 0.24 MILLILITER, QD
     Route: 058
  13. TEDUGLUTIDE [Suspect]
     Active Substance: TEDUGLUTIDE
     Dosage: 0.26 MILLIGRAM
     Route: 058
  14. TEDUGLUTIDE [Suspect]
     Active Substance: TEDUGLUTIDE
     Dosage: 0.26 MILLIGRAM
     Route: 058
  15. TEDUGLUTIDE [Suspect]
     Active Substance: TEDUGLUTIDE
     Dosage: 0.26 MILLIGRAM
     Route: 058
  16. TEDUGLUTIDE [Suspect]
     Active Substance: TEDUGLUTIDE
     Dosage: 0.26 MILLIGRAM
     Route: 058

REACTIONS (6)
  - Catheter placement [Recovered/Resolved]
  - Device malfunction [Recovered/Resolved]
  - Gastroenteritis adenovirus [Not Recovered/Not Resolved]
  - Rotavirus infection [Recovering/Resolving]
  - COVID-19 [Recovered/Resolved]
  - Product temperature excursion issue [Unknown]

NARRATIVE: CASE EVENT DATE: 20210124
